FAERS Safety Report 14919184 (Version 2)
Quarter: 2018Q3

REPORT INFORMATION
  Report Type: Report from Study
  Country: DE (occurrence: DE)
  Receive Date: 20180521
  Receipt Date: 20180705
  Transmission Date: 20181010
  Serious: Yes (Death, Life-Threatening, Hospitalization, Other)
  Sender: FDA-Public Use
  Company Number: DE-IPSEN BIOPHARMACEUTICALS, INC.-2018-01412

PATIENT
  Sex: Female
  Weight: 59 kg

DRUGS (1)
  1. PEGYLATED LIPOSOMAL IRINOTECAN [Suspect]
     Active Substance: IRINOTECAN HYDROCHLORIDE
     Indication: PRODUCT USED FOR UNKNOWN INDICATION
     Dosage: NOT REPORTED
     Route: 065
     Dates: end: 20170926

REACTIONS (2)
  - Disease progression [Fatal]
  - Renal failure [Fatal]

NARRATIVE: CASE EVENT DATE: 20171006
